FAERS Safety Report 6406988-1 (Version None)
Quarter: 2009Q4

REPORT INFORMATION
  Report Type: 
  Country: None (occurrence: None)
  Receive Date: 20091020
  Receipt Date: 20091006
  Transmission Date: 20100525
  Serious: Yes (Other)
  Sender: FDA-Public Use
  Company Number: PHHY2009AU40535

PATIENT
  Sex: Female
  Weight: 64 kg

DRUGS (10)
  1. ACLASTA [Suspect]
     Dosage: UNK
     Route: 042
     Dates: start: 20090908, end: 20090908
  2. COVERSYL                                /BEL/ [Concomitant]
     Dosage: 5 MG, QD
  3. DEPTRAN [Concomitant]
     Dosage: 50 MG, 2 NOCTE
  4. FELDENE [Concomitant]
     Dosage: 0.5 %, UNK
  5. FISH OIL [Concomitant]
     Dosage: 1 DF, TID
  6. GLUCOSAMINE [Concomitant]
  7. LIPITOR [Concomitant]
     Dosage: 80 MG, QD
  8. ACETAMINOPHEN [Concomitant]
     Dosage: 1-2 TID PRN
  9. PANAMAX [Concomitant]
     Dosage: 1-2 QID PRN
  10. SOMAC [Concomitant]
     Dosage: 1 DF, BID

REACTIONS (8)
  - ABDOMINAL DISTENSION [None]
  - BLOOD GLUCOSE INCREASED [None]
  - BLOOD PHOSPHORUS DECREASED [None]
  - BLOOD TRIGLYCERIDES INCREASED [None]
  - CARDIOTHORACIC RATIO INCREASED [None]
  - HEPATIC STEATOSIS [None]
  - OEDEMA PERIPHERAL [None]
  - RENAL CYST [None]
